FAERS Safety Report 4918051-7 (Version None)
Quarter: 2006Q1

REPORT INFORMATION
  Report Type: 
  Country: None (occurrence: None)
  Receive Date: 20060221
  Receipt Date: 20060213
  Transmission Date: 20060701
  Serious: Yes (Hospitalization)
  Sender: FDA-Public Use
  Company Number: US-MERCK-0602USA04017

PATIENT
  Sex: Female

DRUGS (1)
  1. ZETIA [Suspect]
     Route: 048

REACTIONS (7)
  - DYSPHAGIA [None]
  - FATIGUE [None]
  - GALLBLADDER DISORDER [None]
  - LIVER DISORDER [None]
  - MUSCLE ATROPHY [None]
  - NAUSEA [None]
  - RENAL DISORDER [None]
